FAERS Safety Report 12138919 (Version 2)
Quarter: 2016Q1

REPORT INFORMATION
  Report Type: Spontaneous
  Country: US (occurrence: US)
  Receive Date: 20160302
  Receipt Date: 20160302
  Transmission Date: 20160526
  Serious: Yes (Other)
  Sender: FDA-Public Use
  Company Number: US-PRESTIGE BRANDS -1048588

PATIENT
  Age: 15 Year
  Sex: Female

DRUGS (1)
  1. NIX COMPLETE MAXIMUM STRENGTH LICE ELIMINATION [Suspect]
     Active Substance: PERMETHRIN
     Indication: LICE INFESTATION
     Route: 061
     Dates: start: 20151128

REACTIONS (8)
  - Epilepsy [Recovered/Resolved]
  - Paralysis [Recovered/Resolved]
  - Lice infestation [Not Recovered/Not Resolved]
  - Headache [Recovering/Resolving]
  - Mydriasis [Recovered/Resolved]
  - Seizure [Recovered/Resolved]
  - Depression [Not Recovered/Not Resolved]
  - Incorrect drug administration duration [Not Recovered/Not Resolved]

NARRATIVE: CASE EVENT DATE: 20151128
